FAERS Safety Report 12139437 (Version 2)
Quarter: 2016Q2

REPORT INFORMATION
  Report Type: Spontaneous
  Country: US (occurrence: US)
  Receive Date: 20160303
  Receipt Date: 20160422
  Transmission Date: 20160815
  Serious: Yes (Other)
  Sender: FDA-Public Use
  Company Number: US-BEH-2016059249

PATIENT
  Sex: Female
  Weight: 58 kg

DRUGS (25)
  1. SINGULAIR [Concomitant]
     Active Substance: MONTELUKAST SODIUM
  2. DALIRESP [Concomitant]
     Active Substance: ROFLUMILAST
  3. BIOTIN [Concomitant]
     Active Substance: BIOTIN
  4. EPIPEN [Concomitant]
     Active Substance: EPINEPHRINE
  5. ASPIRIN. [Concomitant]
     Active Substance: ASPIRIN
  6. DILTIAZEM [Concomitant]
     Active Substance: DILTIAZEM
  7. LEVOTHYROXINE. [Concomitant]
     Active Substance: LEVOTHYROXINE
  8. DIGITEK [Concomitant]
     Active Substance: DIGOXIN
  9. MAGNESIUM [Concomitant]
     Active Substance: MAGNESIUM
  10. HIZENTRA [Suspect]
     Active Substance: HUMAN IMMUNOGLOBULIN G
     Indication: IMMUNODEFICIENCY COMMON VARIABLE
     Route: 058
     Dates: start: 20151013
  11. HIZENTRA [Suspect]
     Active Substance: HUMAN IMMUNOGLOBULIN G
     Dosage: 4 GM 20 ML VIALS
  12. SYMBICORT [Concomitant]
     Active Substance: BUDESONIDE\FORMOTEROL FUMARATE DIHYDRATE
  13. OXYGEN. [Concomitant]
     Active Substance: OXYGEN
  14. ACETAMINOPHEN. [Concomitant]
     Active Substance: ACETAMINOPHEN
  15. PROBIOTIC [Concomitant]
     Active Substance: PROBIOTICS NOS
  16. XOPENEX [Concomitant]
     Active Substance: LEVALBUTEROL HYDROCHLORIDE
  17. PREDNISONE. [Concomitant]
     Active Substance: PREDNISONE
  18. TRAZODONE [Concomitant]
     Active Substance: TRAZODONE HYDROCHLORIDE
  19. TRAMADOL. [Concomitant]
     Active Substance: TRAMADOL
  20. CALCIUM [Concomitant]
     Active Substance: CALCIUM
  21. TUSSIONEX PENNKINETIC [Concomitant]
     Active Substance: CHLORPHENIRAMINE\HYDROCODONE
  22. DIPHENHYDRAMINE. [Concomitant]
     Active Substance: DIPHENHYDRAMINE
  23. LIDOCAINE. [Concomitant]
     Active Substance: LIDOCAINE
  24. LORAZEPAM. [Concomitant]
     Active Substance: LORAZEPAM
  25. HIZENTRA [Suspect]
     Active Substance: HUMAN IMMUNOGLOBULIN G
     Dosage: 2 GM 10 ML VIALS

REACTIONS (2)
  - Lower respiratory tract infection [Recovered/Resolved]
  - Nasopharyngitis [Recovered/Resolved]
